FAERS Safety Report 4408322-5 (Version None)
Quarter: 2004Q3

REPORT INFORMATION
  Report Type: 
  Country: None (occurrence: None)
  Receive Date: 20040722
  Receipt Date: 20040706
  Transmission Date: 20050211
  Serious: Yes (Hospitalization)
  Sender: FDA-Public Use
  Company Number: B0338551A

PATIENT
  Age: 45 Year
  Sex: Female

DRUGS (4)
  1. ZIAGEN [Suspect]
  2. INDINAVIR SULFATE [Concomitant]
  3. LAMIVUDINE [Concomitant]
  4. ZIDOVUDINE [Concomitant]

REACTIONS (15)
  - AGITATION [None]
  - BLOOD PRESSURE DECREASED [None]
  - CONFUSIONAL STATE [None]
  - DIARRHOEA [None]
  - DIZZINESS [None]
  - DRUG HYPERSENSITIVITY [None]
  - HAEMOLYTIC ANAEMIA [None]
  - MICROANGIOPATHY [None]
  - MUSCULAR WEAKNESS [None]
  - NAUSEA [None]
  - PYREXIA [None]
  - RED BLOOD CELL SCHISTOCYTES PRESENT [None]
  - SYNCOPE [None]
  - THROMBOTIC THROMBOCYTOPENIC PURPURA [None]
  - VOMITING [None]
